FAERS Safety Report 17409542 (Version 2)
Quarter: 2020Q4

REPORT INFORMATION
  Report Type: Report from Study
  Country: IT (occurrence: IT)
  Receive Date: 20200212
  Receipt Date: 20201014
  Transmission Date: 20210113
  Serious: Yes (Hospitalization)
  Sender: FDA-Public Use
  Company Number: IT-SHIRE-IT201931994

PATIENT
  Age: 61 Year
  Sex: Female
  Weight: 57 kg

DRUGS (16)
  1. TEDUGLUTIDE [Suspect]
     Active Substance: TEDUGLUTIDE
     Dosage: 3 MILLIGRAM (0.05 MG/KG), OTHER
     Route: 058
     Dates: start: 20190914, end: 20191230
  2. MODURETIC 5-50 [Concomitant]
     Active Substance: AMILORIDE HYDROCHLORIDE\HYDROCHLOROTHIAZIDE
     Indication: PROPHYLAXIS
  3. TEDUGLUTIDE [Suspect]
     Active Substance: TEDUGLUTIDE
     Indication: SHORT-BOWEL SYNDROME
     Dosage: 3 MILLIGRAM, 1X/DAY:QD
     Route: 058
     Dates: start: 20181029, end: 20190510
  4. TEDUGLUTIDE [Suspect]
     Active Substance: TEDUGLUTIDE
     Dosage: 3 MILLIGRAM (0.05 MG/KG), OTHER
     Route: 058
     Dates: start: 20191231, end: 20200120
  5. RESOLOR [Concomitant]
     Active Substance: PRUCALOPRIDE SUCCINATE
     Indication: CONSTIPATION
  6. TEDUGLUTIDE [Suspect]
     Active Substance: TEDUGLUTIDE
     Indication: SHORT-BOWEL SYNDROME
     Dosage: 3 MILLIGRAM, 1X/DAY:QD
     Route: 058
     Dates: start: 20181029, end: 20190510
  7. TEDUGLUTIDE [Suspect]
     Active Substance: TEDUGLUTIDE
     Dosage: 3 MILLIGRAM (0.05 MG/KG), OTHER
     Route: 058
     Dates: start: 20191231, end: 20200120
  8. SUPRADYN [ASCORBIC ACID;BIOTIN;CALCIUM PANTOTHENATE;CYANOCOBALAMIN;ERG [Concomitant]
     Active Substance: MINERALS\VITAMINS
     Indication: SUPPLEMENTATION THERAPY
  9. TEDUGLUTIDE [Suspect]
     Active Substance: TEDUGLUTIDE
     Dosage: 3 MILLIGRAM (0.05 MG/KG), OTHER
     Route: 058
     Dates: start: 20190914, end: 20191230
  10. TEDUGLUTIDE [Suspect]
     Active Substance: TEDUGLUTIDE
     Dosage: 3 MILLIGRAM (0.05 MG/KG), OTHER
     Route: 058
     Dates: start: 20190914, end: 20191230
  11. TEDUGLUTIDE [Suspect]
     Active Substance: TEDUGLUTIDE
     Indication: SHORT-BOWEL SYNDROME
     Dosage: 3 MILLIGRAM, 1X/DAY:QD
     Route: 058
     Dates: start: 20181029, end: 20190510
  12. TEDUGLUTIDE [Suspect]
     Active Substance: TEDUGLUTIDE
     Dosage: 3 MILLIGRAM (0.05 MG/KG), OTHER
     Route: 058
     Dates: start: 20191231, end: 20200120
  13. DAFLON [BIOFLAVONOIDS;DIOSMIN;HESPERIDIN] [Concomitant]
     Active Substance: BIOFLAVONOIDS\DIOSMIN\HESPERIDIN
     Indication: PAIN IN EXTREMITY
  14. TEDUGLUTIDE [Suspect]
     Active Substance: TEDUGLUTIDE
     Indication: SHORT-BOWEL SYNDROME
     Dosage: 3 MILLIGRAM, 1X/DAY:QD
     Route: 058
     Dates: start: 20181029, end: 20190510
  15. TEDUGLUTIDE [Suspect]
     Active Substance: TEDUGLUTIDE
     Dosage: 3 MILLIGRAM (0.05 MG/KG), OTHER
     Route: 058
     Dates: start: 20190914, end: 20191230
  16. TEDUGLUTIDE [Suspect]
     Active Substance: TEDUGLUTIDE
     Dosage: 3 MILLIGRAM (0.05 MG/KG), OTHER
     Route: 058
     Dates: start: 20191231, end: 20200120

REACTIONS (2)
  - Abdominal pain [Recovered/Resolved]
  - Flatulence [Recovered/Resolved]

NARRATIVE: CASE EVENT DATE: 20190802
